FAERS Safety Report 11635696 (Version 1)
Quarter: 2015Q4

REPORT INFORMATION
  Report Type: Spontaneous
  Country: US (occurrence: US)
  Receive Date: 20151016
  Receipt Date: 20151016
  Transmission Date: 20160304
  Serious: No
  Sender: FDA-Public Use
  Company Number: US-PFIZER INC-2015341772

PATIENT
  Age: 9 Year
  Sex: Male
  Weight: 48 kg

DRUGS (1)
  1. QUILLIVANT XR [Suspect]
     Active Substance: METHYLPHENIDATE HYDROCHLORIDE
     Indication: ATTENTION DEFICIT/HYPERACTIVITY DISORDER
     Dosage: 8, 2X/DAY

REACTIONS (2)
  - Abnormal behaviour [Recovered/Resolved]
  - Product reconstitution issue [Recovered/Resolved]
